FAERS Safety Report 23925437 (Version 1)
Quarter: 2024Q2

REPORT INFORMATION
  Report Type: Spontaneous
  Country: US (occurrence: None)
  Receive Date: 20240530
  Receipt Date: 20240530
  Transmission Date: 20240716
  Serious: No
  Sender: FDA-Public Use
  Company Number: None

PATIENT
  Age: 57 Year
  Sex: Female
  Weight: 81 kg

DRUGS (1)
  1. HERBALS\TETRAHYDROCANNABIPHOROL [Suspect]
     Active Substance: HERBALS\TETRAHYDROCANNABIPHOROL
     Indication: Substance use
     Dosage: OTHER QUANTITY : 1 1  ?
     Route: 048
     Dates: start: 20240518, end: 20240518

REACTIONS (6)
  - Vomiting [None]
  - Substance use [None]
  - Disorientation [None]
  - Anxiety [None]
  - Confusional state [None]
  - Fear [None]

NARRATIVE: CASE EVENT DATE: 20240518
